FAERS Safety Report 6163779-7 (Version None)
Quarter: 2009Q2

REPORT INFORMATION
  Report Type: 
  Country: None (occurrence: None)
  Receive Date: 20090420
  Receipt Date: 20090412
  Transmission Date: 20091009
  Serious: Yes (Hospitalization)
  Sender: FDA-Public Use
  Company Number: CHPA2009US09290

PATIENT
  Age: 85 Year
  Sex: Female

DRUGS (10)
  1. MAALOX ANTACID/ANTIGAS MAX LIQ (NCH)(MAGNESIUM HYDROXIDE, ALUMINIUM HY [Suspect]
     Indication: GASTROOESOPHAGEAL REFLUX DISEASE
     Dosage: 6 TSP, QD, ORAL
     Route: 048
     Dates: start: 20090301, end: 20090412
  2. PEPCID AC [Concomitant]
  3. NEXIUM [Concomitant]
  4. EVISTA [Concomitant]
  5. DRUG THERAPY NOS (DRUG THERAPY NOS) [Concomitant]
  6. LEVOTHYROXINE SODIUM [Concomitant]
  7. ASCORBIC ACID [Concomitant]
  8. OSCAL (CALCIUM CARBONATE) [Concomitant]
  9. VITAMINS (NO INGREDIENTS/SUBSTANCES) [Concomitant]
  10. IRON (IRON) [Concomitant]

REACTIONS (2)
  - DYSPNOEA [None]
  - INTENTIONAL DRUG MISUSE [None]
